FAERS Safety Report 20218394 (Version 1)
Quarter: 2021Q4

REPORT INFORMATION
  Report Type: Spontaneous
  Country: US (occurrence: US)
  Receive Date: 20211222
  Receipt Date: 20211222
  Transmission Date: 20220303
  Serious: No
  Sender: FDA-Public Use
  Company Number: US-BioHaven Pharmaceuticals-2021BHV000496

PATIENT
  Age: 56 Year
  Sex: Female
  Weight: 42.222 kg

DRUGS (2)
  1. NURTEC ODT [Suspect]
     Active Substance: RIMEGEPANT SULFATE
     Indication: Migraine
     Dates: start: 20210807, end: 20211006
  2. FROVATRIPTAN [Concomitant]
     Active Substance: FROVATRIPTAN

REACTIONS (1)
  - Headache [Unknown]

NARRATIVE: CASE EVENT DATE: 20211005
